FAERS Safety Report 17823990 (Version 2)
Quarter: 2021Q1

REPORT INFORMATION
  Report Type: Spontaneous
  Country: US (occurrence: US)
  Receive Date: 20200526
  Receipt Date: 20210128
  Transmission Date: 20210419
  Serious: No
  Sender: FDA-Public Use
  Company Number: US-PFIZER INC-2020159478

PATIENT
  Age: 57 Year
  Sex: Female

DRUGS (1)
  1. GENOTROPIN [Suspect]
     Active Substance: SOMATROPIN
     Dosage: 5 MG

REACTIONS (5)
  - Product supply issue [Unknown]
  - Product dose omission issue [Unknown]
  - Wrong device used [Unknown]
  - Device use confusion [Unknown]
  - Incorrect dose administered by device [Unknown]
